FAERS Safety Report 9898954 (Version 2)
Quarter: 2014Q2

REPORT INFORMATION
  Report Type: Spontaneous
  Country: US (occurrence: US)
  Receive Date: 20140214
  Receipt Date: 20140609
  Transmission Date: 20141212
  Serious: Yes (Other)
  Sender: FDA-Public Use
  Company Number: US-GLAXOSMITHKLINE-A1060290A

PATIENT
  Age: 55 Year
  Sex: Female

DRUGS (13)
  1. ARIXTRA [Suspect]
     Indication: THROMBOSIS
     Dosage: 7.5MG PER DAY
     Route: 058
     Dates: start: 20131103
  2. HEPARIN [Suspect]
  3. PROGRAF [Concomitant]
  4. BACTRIM [Concomitant]
  5. PRILOSEC [Concomitant]
     Dosage: 20MG TWICE PER DAY
  6. CELEXA [Concomitant]
     Dosage: 20MG PER DAY
  7. NADOLOL [Concomitant]
     Dosage: 80MG PER DAY
  8. SYNTHROID [Concomitant]
  9. METHOCARBAMOL [Concomitant]
  10. OXAZEPAM [Concomitant]
  11. FENTANYL PATCH [Concomitant]
  12. DILAUDID [Concomitant]
  13. LOVENOX [Concomitant]

REACTIONS (8)
  - Antiphospholipid syndrome [Unknown]
  - Headache [Not Recovered/Not Resolved]
  - Stress [Not Recovered/Not Resolved]
  - Decreased appetite [Not Recovered/Not Resolved]
  - Injection site bruising [Not Recovered/Not Resolved]
  - Mental impairment [Unknown]
  - Confusional state [Unknown]
  - Emotional distress [Unknown]
